FAERS Safety Report 20417238 (Version 2)
Quarter: 2022Q1

REPORT INFORMATION
  Report Type: Spontaneous
  Country: JP (occurrence: JP)
  Receive Date: 20220202
  Receipt Date: 20220209
  Transmission Date: 20220423
  Serious: Yes (Hospitalization, Other)
  Sender: FDA-Public Use
  Company Number: JP-GSKNCCC-Case-01406128_AE-54173

PATIENT
  Age: 37 Year
  Sex: Male
  Weight: 65 kg

DRUGS (11)
  1. SOTROVIMAB [Suspect]
     Active Substance: SOTROVIMAB
     Indication: COVID-19
     Dosage: 500 MG, QD, ADMINISTERED OVER 30 MINUTES
     Route: 042
     Dates: start: 20220125, end: 20220125
  2. CEFUROXIME [Concomitant]
     Active Substance: CEFUROXIME
     Dosage: UNK
     Route: 048
  3. DEQUALINIUM CHLORIDE [Concomitant]
     Active Substance: DEQUALINIUM CHLORIDE
     Dosage: UNK
     Route: 048
     Dates: start: 20220125
  4. ASVERIN (TIPEPIDINE HIBENZATE) [Concomitant]
     Active Substance: TIPEPIDINE HIBENZATE
     Dosage: UNK
     Route: 048
     Dates: start: 20220125
  5. LOXOPROFEN SODIUM HYDRATE TABLET [Concomitant]
     Dosage: UNK
     Route: 048
     Dates: start: 20220125
  6. REBAMIPIDE TABLETS [Concomitant]
     Dosage: UNK
     Route: 048
     Dates: start: 20220125
  7. CARBOCYSTEINE [Concomitant]
     Active Substance: CARBOCYSTEINE
     Dosage: UNK
     Route: 048
  8. FEXOFENADINE HYDROCHLORIDE [Concomitant]
     Active Substance: FEXOFENADINE HYDROCHLORIDE
     Dosage: UNK
     Route: 048
  9. BILANOA TABLET [Concomitant]
     Dosage: UNK
     Route: 048
  10. KIPRES TABLETS [Concomitant]
     Dosage: UNK
     Route: 048
  11. SYMBICORT [Concomitant]
     Active Substance: BUDESONIDE\FORMOTEROL FUMARATE DIHYDRATE
     Dosage: UNK
     Route: 055

REACTIONS (5)
  - Hypersensitivity [Recovering/Resolving]
  - Rash [Recovering/Resolving]
  - Erythema [Recovering/Resolving]
  - Pruritus [Recovering/Resolving]
  - Anaphylactic reaction [Unknown]

NARRATIVE: CASE EVENT DATE: 20220125
